FAERS Safety Report 10174434 (Version 1)
Quarter: 2014Q2

REPORT INFORMATION
  Report Type: Spontaneous
  Country: FR (occurrence: FR)
  Receive Date: 20140515
  Receipt Date: 20140515
  Transmission Date: 20141212
  Serious: Yes (Hospitalization, Other)
  Sender: FDA-Public Use
  Company Number: FR-ASTRAZENECA-2014SE31816

PATIENT
  Age: 2777 Week
  Sex: Male

DRUGS (10)
  1. XEROQUEL [Suspect]
     Route: 048
     Dates: end: 20140407
  2. NOCTAMIDE [Interacting]
     Route: 048
     Dates: end: 20140407
  3. TRANXENE [Interacting]
     Dosage: 10 MG EVERY MORNING, 10 MG AT MIDDAY AND TWO DF OF 10 MG EVERY EVENING
     Route: 048
     Dates: end: 20140407
  4. DEPAKOTE [Interacting]
     Dosage: 500 MG ONE DF EVERY MORNING, AT MIDDAY AND TWO DF EVERY EVENING
     Route: 048
  5. DAFALGAN CODEINE [Interacting]
     Route: 048
     Dates: end: 20140407
  6. LOXAPAC [Interacting]
     Dosage: 100 DROPS EVERY MORNING, 25 DROPS AT MIDDAY AND 100 DROPS EVERY EVENING
     Route: 048
     Dates: end: 20140407
  7. IDARAC [Interacting]
     Route: 048
     Dates: end: 20140407
  8. LYRICA [Interacting]
     Route: 048
  9. XATRAL [Concomitant]
     Route: 048
  10. BACTRIM [Concomitant]
     Route: 048
     Dates: start: 20140404, end: 20140407

REACTIONS (13)
  - Drug interaction [Unknown]
  - Disturbance in attention [Recovered/Resolved]
  - Oxygen saturation decreased [Unknown]
  - Coma scale abnormal [Unknown]
  - Respiratory tract congestion [Unknown]
  - Breath sounds abnormal [Unknown]
  - Rhonchi [Unknown]
  - Abdominal distension [Unknown]
  - White blood cell count increased [Unknown]
  - C-reactive protein increased [Unknown]
  - Pneumonia aspiration [Unknown]
  - Bladder dilatation [Unknown]
  - Gamma-glutamyltransferase increased [Unknown]
